FAERS Safety Report 7189451-2 (Version None)
Quarter: 2010Q4

REPORT INFORMATION
  Report Type: 
  Country: None (occurrence: None)
  Receive Date: 20101223
  Receipt Date: 20101213
  Transmission Date: 20110411
  Serious: Yes (Other)
  Sender: FDA-Public Use
  Company Number: NL-AMGEN-NLDSP2010010511

PATIENT

DRUGS (2)
  1. ENBREL [Suspect]
     Indication: RHEUMATOID ARTHRITIS
     Dosage: 50 MG, WEEKLY
     Dates: start: 20100910, end: 20101014
  2. PREDNISONE [Suspect]
     Dosage: 300 MG, UNK
     Route: 042
     Dates: start: 20100101, end: 20100101

REACTIONS (4)
  - HEPATIC FUNCTION ABNORMAL [None]
  - HEPATIC HAEMORRHAGE [None]
  - LIVER INJURY [None]
  - RHEUMATOID ARTHRITIS [None]
